FAERS Safety Report 11976134 (Version 1)
Quarter: 2016Q1

REPORT INFORMATION
  Report Type: Spontaneous
  Country: US (occurrence: US)
  Receive Date: 20160129
  Receipt Date: 20160129
  Transmission Date: 20160526
  Serious: Yes (Other)
  Sender: FDA-Public Use
  Company Number: US-JNJCP-30000320872

PATIENT
  Sex: Female

DRUGS (1)
  1. NEUTROGENA RAPID CLEAR STUBBORN ACNE CLEANSER [Suspect]
     Active Substance: BENZOYL PEROXIDE
     Indication: PRODUCT USED FOR UNKNOWN INDICATION
     Route: 061

REACTIONS (3)
  - Depression [Not Recovered/Not Resolved]
  - Application site scar [Not Recovered/Not Resolved]
  - Application site burn [Not Recovered/Not Resolved]
